FAERS Safety Report 18599843 (Version 1)
Quarter: 2020Q4

REPORT INFORMATION
  Report Type: Spontaneous
  Country: US (occurrence: US)
  Receive Date: 20201209
  Receipt Date: 20201209
  Transmission Date: 20210114
  Serious: No
  Sender: FDA-Public Use
  Company Number: None

PATIENT
  Age: 58 Year
  Sex: Female
  Weight: 44.1 kg

DRUGS (4)
  1. OMEPRAZOLE. [Concomitant]
     Active Substance: OMEPRAZOLE
  2. ROPINIROLE 2 MG [Suspect]
     Active Substance: ROPINIROLE HYDROCHLORIDE
     Indication: RESTLESS LEGS SYNDROME
     Route: 048
     Dates: start: 20200920, end: 20200921
  3. ATORVASTATIN [Concomitant]
     Active Substance: ATORVASTATIN
  4. BLACK COHASH [Concomitant]

REACTIONS (3)
  - Headache [None]
  - Vomiting [None]
  - Retching [None]

NARRATIVE: CASE EVENT DATE: 20200920
